FAERS Safety Report 15656363 (Version 2)
Quarter: 2018Q4

REPORT INFORMATION
  Report Type: Spontaneous
  Country: HR (occurrence: HR)
  Receive Date: 20181126
  Receipt Date: 20181205
  Transmission Date: 20190205
  Serious: Yes (Disabling, Other)
  Sender: FDA-Public Use
  Company Number: HR-PFIZER INC-2018481946

PATIENT
  Age: 81 Year
  Sex: Female
  Weight: 87 kg

DRUGS (7)
  1. VASILIP [Concomitant]
     Active Substance: SIMVASTATIN
     Indication: MYOCARDIAL INFARCTION
     Dosage: 10 MG, 1X/DAY
     Route: 048
     Dates: start: 20141105
  2. XALATAN [Concomitant]
     Active Substance: LATANOPROST
     Indication: GLAUCOMA
     Dosage: UNK
     Route: 048
  3. LASIX [Concomitant]
     Active Substance: FUROSEMIDE
     Dosage: 40 MG, ALTERNATE DAY
     Route: 048
     Dates: start: 2018, end: 2018
  4. CARDOX [ISOSORBIDE MONONITRATE] [Concomitant]
     Indication: ANGINA PECTORIS
     Dosage: 80 MG, 1X/DAY
     Route: 048
     Dates: start: 20141105
  5. PRAXITEN [Concomitant]
     Active Substance: OXAZEPAM
     Indication: MOVEMENT DISORDER
     Dosage: 15 MG, 1X/DAY
     Route: 048
     Dates: start: 20141105, end: 20180916
  6. IRUZID (HYDROCHLOROTHIAZIDE/LISINOPRIL DIHYDRATE) [Interacting]
     Active Substance: HYDROCHLOROTHIAZIDE\LISINOPRIL
     Indication: ESSENTIAL HYPERTENSION
     Dosage: 1 DF, 1X/DAY
     Route: 048
     Dates: start: 201206, end: 20180906
  7. NORVASC [Suspect]
     Active Substance: AMLODIPINE BESYLATE
     Indication: ESSENTIAL HYPERTENSION
     Dosage: 10 MG, 1X/DAY
     Route: 048
     Dates: start: 201206, end: 20180906

REACTIONS (6)
  - Insomnia [Recovered/Resolved]
  - Parkinsonism [Recovered/Resolved]
  - Restless legs syndrome [Recovered/Resolved]
  - Pain in extremity [Recovered/Resolved]
  - Localised oedema [Recovered/Resolved]
  - Drug interaction [Unknown]

NARRATIVE: CASE EVENT DATE: 20141105
